FAERS Safety Report 4659266-5 (Version None)
Quarter: 2005Q2

REPORT INFORMATION
  Report Type: 
  Country: None (occurrence: None)
  Receive Date: 20050511
  Receipt Date: 20050215
  Transmission Date: 20051028
  Serious: Yes (Other)
  Sender: FDA-Public Use
  Company Number: US-AMGEN-US114239

PATIENT
  Age: 92 Year
  Sex: Female

DRUGS (1)
  1. ENBREL [Suspect]
     Indication: PSORIASIS
     Route: 058
     Dates: start: 20030101

REACTIONS (4)
  - KERATOCONJUNCTIVITIS SICCA [None]
  - KERATOPATHY [None]
  - MACULAR DEGENERATION [None]
  - POSTERIOR CAPSULE OPACIFICATION [None]
